FAERS Safety Report 17459890 (Version 1)
Quarter: 2020Q1

REPORT INFORMATION
  Report Type: Spontaneous
  Country: US (occurrence: US)
  Receive Date: 20200212
  Receipt Date: 20200212
  Transmission Date: 20200409
  Serious: Yes (Hospitalization)
  Sender: FDA-Public Use
  Company Number: None

PATIENT
  Age: 14 Year
  Sex: Male
  Weight: 47.2 kg

DRUGS (5)
  1. METHOTREXATE. [Suspect]
     Active Substance: METHOTREXATE
     Dates: end: 20200102
  2. VINCRISTINE SULFATE. [Suspect]
     Active Substance: VINCRISTINE SULFATE
     Dates: end: 20200102
  3. PREDNISONE. [Suspect]
     Active Substance: PREDNISONE
     Dates: end: 20200106
  4. MERCAPTOPURINE. [Suspect]
     Active Substance: MERCAPTOPURINE
     Dates: end: 20200101
  5. GLEEVEC [Suspect]
     Active Substance: IMATINIB MESYLATE
     Dates: end: 20200106

REACTIONS (8)
  - Tracheostomy [None]
  - Pyrexia [None]
  - Septic shock [None]
  - Splenomegaly [None]
  - Acute respiratory distress syndrome [None]
  - Colitis [None]
  - Syncope [None]
  - Haemophagocytic lymphohistiocytosis [None]

NARRATIVE: CASE EVENT DATE: 20200126
